FAERS Safety Report 7066762-2 (Version None)
Quarter: 2010Q4

REPORT INFORMATION
  Report Type: 
  Country: None (occurrence: None)
  Receive Date: 20101027
  Receipt Date: 20100831
  Transmission Date: 20110411
  Serious: No
  Sender: FDA-Public Use
  Company Number: US-WYE-H17260710

PATIENT
  Sex: Female
  Weight: 54.48 kg

DRUGS (1)
  1. PREMPRO [Suspect]
     Indication: ATROPHIC VULVOVAGINITIS
     Dosage: 0.625/2.5 MG DAILY
     Route: 048
     Dates: start: 20100609, end: 20100810

REACTIONS (3)
  - BREAST ENLARGEMENT [None]
  - BREAST PAIN [None]
  - BREAST TENDERNESS [None]
